FAERS Safety Report 8573409-2 (Version None)
Quarter: 2012Q3

REPORT INFORMATION
  Report Type: 
  Country: None (occurrence: None)
  Receive Date: 20120806
  Receipt Date: 20120727
  Transmission Date: 20120928
  Serious: Yes (Hospitalization)
  Sender: FDA-Public Use
  Company Number: FR-BRISTOL-MYERS SQUIBB COMPANY-16664153

PATIENT
  Age: 60 Year
  Sex: Male
  Weight: 64 kg

DRUGS (4)
  1. CETUXIMAB [Suspect]
     Indication: HEAD AND NECK CANCER
     Dosage: CETUXIMAB IV INFUSION LAST DOSE ON 22JUN2011
     Route: 041
     Dates: start: 20110518
  2. CISPLATIN [Suspect]
     Indication: HEAD AND NECK CANCER
     Dosage: LASTT DOSE ON 18APR2011
     Dates: start: 20110307
  3. DOCETAXEL [Suspect]
     Indication: HEAD AND NECK CANCER
     Dosage: LAST DOSE ON 18APR2011
     Dates: start: 20110307
  4. FLUOROURACIL [Suspect]
     Indication: HEAD AND NECK CANCER
     Dosage: LAST DOSE ON 22APR2011
     Dates: start: 20110307

REACTIONS (2)
  - DEVICE RELATED SEPSIS [None]
  - MUCOSAL INFLAMMATION [None]
